FAERS Safety Report 14025729 (Version 1)
Quarter: 2017Q3

REPORT INFORMATION
  Report Type: Report from Study
  Country: US (occurrence: US)
  Receive Date: 20170929
  Receipt Date: 20170929
  Transmission Date: 20171128
  Serious: Yes (Other)
  Sender: FDA-Public Use
  Company Number: US-ROCHE-1394173

PATIENT
  Age: 48 Year
  Sex: Female
  Weight: 93.9 kg

DRUGS (8)
  1. RITUXIMAB. [Suspect]
     Active Substance: RITUXIMAB
     Indication: CHRONIC LYMPHOCYTIC LEUKAEMIA
     Dosage: TOTAL DOSE ADMINISTERED THIS COURSE 795 MG?DATE OF LAST DOSE PRIOR TO ADMINISTRATION 02/NOV/2010.
     Route: 042
     Dates: start: 20100719
  2. CYCLOPHOSPHAMIDE. [Suspect]
     Active Substance: CYCLOPHOSPHAMIDE
     Indication: CHRONIC LYMPHOCYTIC LEUKAEMIA
     Dosage: TOTAL DOSE ADMINISTERED THIS COURSE 1272 MG?DATE OF LAST DOSE PRIOR TO ADMINISTRATION 02/NOV/2010.
     Route: 042
     Dates: start: 20100719
  3. DECADRON [Concomitant]
     Active Substance: DEXAMETHASONE
  4. TYLENOL [Concomitant]
     Active Substance: ACETAMINOPHEN
  5. BENADRYL [Concomitant]
     Active Substance: DIPHENHYDRAMINE HYDROCHLORIDE
  6. BEVACIZUMAB. [Suspect]
     Active Substance: BEVACIZUMAB
     Indication: CHRONIC LYMPHOCYTIC LEUKAEMIA
     Dosage: TOTAL DOSE ADMINISTERED THIS COURSE 1416 MG?DATE OF LAST DOSE PRIOR TO ADMINISTRATION 02/NOV/2010.
     Route: 042
     Dates: start: 20100719
  7. PENTOSTATIN. [Suspect]
     Active Substance: PENTOSTATIN
     Indication: CHRONIC LYMPHOCYTIC LEUKAEMIA
     Dosage: TOTAL DOSE ADMINISTERED THIS COURSE 4.2 MG?DATE OF LAST DOSE PRIOR TO ADMINISTRATION 02/NOV/2010.
     Route: 042
     Dates: start: 20100719
  8. ALOXI [Concomitant]
     Active Substance: PALONOSETRON HYDROCHLORIDE

REACTIONS (3)
  - Neutrophil count decreased [Recovered/Resolved]
  - Myocardial ischaemia [Unknown]
  - Hypertension [Unknown]

NARRATIVE: CASE EVENT DATE: 20101108
